FAERS Safety Report 5299824-0 (Version None)
Quarter: 2007Q2

REPORT INFORMATION
  Report Type: 
  Country: None (occurrence: None)
  Receive Date: 20070417
  Receipt Date: 20070405
  Transmission Date: 20071010
  Serious: Yes (Other)
  Sender: FDA-Public Use
  Company Number: JP-PFIZER INC-2007028798

PATIENT
  Age: 48 Year
  Sex: Male

DRUGS (2)
  1. CABASER [Suspect]
     Dosage: DAILY DOSE:2MG
     Route: 048
  2. PERGOLIDE MESYLATE [Suspect]
     Dosage: DAILY DOSE:1.5MG
     Route: 048

REACTIONS (2)
  - AORTIC VALVE INCOMPETENCE [None]
  - CARDIAC VALVE DISEASE [None]
